APPROVED DRUG PRODUCT: SULFAMETHOXAZOLE AND TRIMETHOPRIM
Active Ingredient: SULFAMETHOXAZOLE; TRIMETHOPRIM
Strength: 200MG/5ML;40MG/5ML **Federal Register determination that product was not discontinued or withdrawn for safety or effectiveness reasons**
Dosage Form/Route: SUSPENSION;ORAL
Application: A077612 | Product #001 | TE Code: AB
Applicant: PRASCO LLC DBA PRASCO LABORATORIES
Approved: Nov 13, 2006 | RLD: No | RS: No | Type: RX